FAERS Safety Report 9964232 (Version 1)
Quarter: 2014Q1

REPORT INFORMATION
  Report Type: Spontaneous
  Country: PL (occurrence: PL)
  Receive Date: 20140305
  Receipt Date: 20140305
  Transmission Date: 20141002
  Serious: Yes (Other)
  Sender: FDA-Public Use
  Company Number: PHHY2014PL026675

PATIENT
  Sex: 0

DRUGS (11)
  1. DICLOFENAC [Suspect]
     Dosage: UNK
     Route: 064
     Dates: start: 20061126, end: 20061127
  2. PARACETAMOL [Suspect]
     Dosage: UNK
     Route: 064
     Dates: start: 20061126, end: 20061127
  3. HALOPERIDOL [Suspect]
     Dosage: UNK
     Route: 064
     Dates: start: 20061127
  4. SOLU-MEDROL [Suspect]
     Dosage: UNK
     Route: 064
     Dates: start: 20061127
  5. DOLCONTRAL [Suspect]
     Dosage: UNK
     Route: 064
     Dates: start: 20061127
  6. LOSAC [Suspect]
     Dosage: UNK
     Route: 064
     Dates: start: 20061127
  7. FUROSEMIDE [Suspect]
     Dosage: UNK
     Route: 064
     Dates: start: 20061127
  8. ZOFRAN [Suspect]
     Dosage: UNK
     Route: 064
     Dates: start: 20061127
  9. MANNITOL [Suspect]
     Dosage: UNK
     Route: 064
     Dates: start: 20061127
  10. BICARBONATE [Suspect]
     Dosage: UNK
     Route: 064
     Dates: start: 20061127
  11. MAGNESIUM SULPHATE /01097001/ [Suspect]
     Route: 064

REACTIONS (3)
  - Premature baby [Unknown]
  - Low birth weight baby [Unknown]
  - Foetal exposure during pregnancy [Unknown]
